FAERS Safety Report 13353636 (Version 1)
Quarter: 2017Q1

REPORT INFORMATION
  Report Type: Spontaneous
  Country: US (occurrence: US)
  Receive Date: 20170319
  Receipt Date: 20170319
  Transmission Date: 20170429
  Serious: Yes (Disabling)
  Sender: FDA-Public Use
  Company Number: None

PATIENT
  Age: 56 Year
  Sex: Male
  Weight: 78.75 kg

DRUGS (6)
  1. ASTAXANTHIN [Concomitant]
  2. MELOXICAM. [Concomitant]
     Active Substance: MELOXICAM
  3. MAGNESIUM OIL [Concomitant]
  4. MULTIVITAMIN [Concomitant]
     Active Substance: VITAMINS
  5. CIPROFLOXACIN HCL 500 MG TAB [Suspect]
     Active Substance: CIPROFLOXACIN HYDROCHLORIDE
     Indication: PYREXIA
     Dosage: ?          QUANTITY:28 TABLET(S);?
     Route: 048
     Dates: start: 20170113, end: 20170116
  6. SAW PALMETTO [Concomitant]
     Active Substance: SAW PALMETTO

REACTIONS (11)
  - Peripheral swelling [None]
  - Arthritis [None]
  - Pyrexia [None]
  - Limb discomfort [None]
  - Lyme disease [None]
  - Pain in extremity [None]
  - Muscle tightness [None]
  - Night sweats [None]
  - Drug ineffective [None]
  - Tremor [None]
  - Neck pain [None]

NARRATIVE: CASE EVENT DATE: 20170117
